FAERS Safety Report 19186566 (Version 2)
Quarter: 2021Q2

REPORT INFORMATION
  Report Type: Spontaneous
  Country: US (occurrence: US)
  Receive Date: 20210427
  Receipt Date: 20210429
  Transmission Date: 20210717
  Serious: No
  Sender: FDA-Public Use
  Company Number: US-ELI_LILLY_AND_COMPANY-US202104011110

PATIENT
  Age: 69 Year
  Sex: Female

DRUGS (1)
  1. TRULICITY [Suspect]
     Active Substance: DULAGLUTIDE
     Indication: PRODUCT USED FOR UNKNOWN INDICATION
     Dosage: 0.75 MG, UNKNOWN
     Route: 065
     Dates: start: 202103

REACTIONS (9)
  - Tremor [Not Recovered/Not Resolved]
  - Product storage error [Unknown]
  - Malaise [Recovering/Resolving]
  - Injection site erythema [Recovering/Resolving]
  - Nervousness [Not Recovered/Not Resolved]
  - Pain in extremity [Recovering/Resolving]
  - Dizziness [Not Recovered/Not Resolved]
  - Asthenia [Not Recovered/Not Resolved]
  - Nausea [Recovering/Resolving]

NARRATIVE: CASE EVENT DATE: 20210422
